FAERS Safety Report 8624597-0 (Version None)
Quarter: 2012Q3

REPORT INFORMATION
  Report Type: 
  Country: None (occurrence: None)
  Receive Date: 20120827
  Receipt Date: 20120820
  Transmission Date: 20120928
  Serious: Yes (Hospitalization)
  Sender: FDA-Public Use
  Company Number: SE-UCBSA-064056

PATIENT
  Age: 59 Year
  Sex: Female

DRUGS (11)
  1. PREDNISOLONE [Concomitant]
  2. MUPIROCIN [Concomitant]
  3. CIMZIA [Suspect]
     Indication: RHEUMATOID ARTHRITIS
     Route: 058
     Dates: start: 20120101, end: 20120514
  4. FILGRASTIM [Suspect]
     Indication: FEBRILE NEUTROPENIA
     Dates: start: 20120517, end: 20120601
  5. ARTIFICIAL TEARS [Concomitant]
  6. CIPROFLOXACIN [Concomitant]
  7. CEFEPIME HYDROCHLORIDE [Concomitant]
     Dates: start: 20120517
  8. FOLIC ACID [Concomitant]
  9. CHOLECALCIFEROL [Concomitant]
  10. PERINDOPRIL [Concomitant]
  11. PANTOPRAZOLE [Concomitant]

REACTIONS (4)
  - RHEUMATOID ARTHRITIS [None]
  - RASH [None]
  - WHITE BLOOD CELL COUNT INCREASED [None]
  - FEBRILE NEUTROPENIA [None]
